FAERS Safety Report 7607316-6 (Version None)
Quarter: 2011Q3

REPORT INFORMATION
  Report Type: 
  Country: None (occurrence: None)
  Receive Date: 20110712
  Receipt Date: 20110712
  Transmission Date: 20111222
  Serious: Yes (Hospitalization)
  Sender: FDA-Public Use
  Company Number: None

PATIENT
  Sex: Female
  Weight: 75 kg

DRUGS (2)
  1. CARBOPLATIN [Suspect]
     Dosage: 1490.4MG
     Dates: end: 20110615
  2. TAXOL [Suspect]
     Dosage: 516MG
     Dates: end: 20110615

REACTIONS (10)
  - CONSTIPATION [None]
  - INFECTION [None]
  - DEHYDRATION [None]
  - VOMITING [None]
  - LEUKOCYTOSIS [None]
  - SPUTUM DISCOLOURED [None]
  - MALAISE [None]
  - NAUSEA [None]
  - PRODUCTIVE COUGH [None]
  - PYREXIA [None]
